FAERS Safety Report 8374626-7 (Version None)
Quarter: 2012Q2

REPORT INFORMATION
  Report Type: 
  Country: None (occurrence: None)
  Receive Date: 20120521
  Receipt Date: 20110913
  Transmission Date: 20120825
  Serious: No
  Sender: FDA-Public Use
  Company Number: US-ASTRAZENECA-2011SE63161

PATIENT
  Age: 85 Year
  Sex: Male

DRUGS (8)
  1. NORVASC [Concomitant]
     Dosage: UNKNOWN
  2. ZOCOR [Concomitant]
     Dosage: UNKNOWN
  3. CLARITIN [Concomitant]
     Dosage: UNKNOWN
  4. PRILOSEC OTC [Suspect]
     Route: 048
     Dates: start: 20110910
  5. ANTIHISTAMINES [Concomitant]
     Dosage: UNKNOWN
  6. METAMUCIL, FORM/VERSION/TEXTURE/FLAVOR UNKNOWN [Concomitant]
     Dosage: UNKNOWN
  7. FLOMAX [Concomitant]
     Dosage: UNKNOWN
  8. COSOPT [Concomitant]
     Dosage: UNKNOWN

REACTIONS (2)
  - FREQUENT BOWEL MOVEMENTS [None]
  - DIARRHOEA [None]
